FAERS Safety Report 9932086 (Version 1)
Quarter: 2014Q1

REPORT INFORMATION
  Report Type: Spontaneous
  Country: US (occurrence: None)
  Receive Date: 20140227
  Receipt Date: 20140227
  Transmission Date: 20141002
  Serious: Yes (Life-Threatening, Hospitalization)
  Sender: FDA-Public Use
  Company Number: None

PATIENT
  Age: 80 Year
  Sex: Female

DRUGS (17)
  1. ASPIRIN 81 MG [Suspect]
     Indication: CEREBROVASCULAR ACCIDENT PROPHYLAXIS
  2. ENOXAPARIN 60 MG UNKNOWN [Suspect]
  3. NEURONTIN (GABAPENTIN) [Concomitant]
  4. NOVOLOG (INSULIN ASPART) [Concomitant]
  5. SCALE LANTUS (INSULIN GLARGINE) [Concomitant]
  6. DUONEB (IPRATROPIUM/ALBUTEROL) [Concomitant]
  7. KEPPRA (LEVETIRACETAM) [Concomitant]
  8. NAMENDA (MEMANTINE) [Concomitant]
  9. LOPRESSOR (METOPROLOL TARTRATE) [Concomitant]
  10. DILANTIN (PHENYTOIN) [Concomitant]
  11. ZOCOR (SIMVASTATIN) [Concomitant]
  12. SODIUM CHLORIDE 0.9% [Concomitant]
  13. VANCOCIN (VANCOMYCIN) [Concomitant]
  14. ZOSYN (PIPERACILLIN- TAZOBACTAM) [Concomitant]
  15. PEPCID (FAMOTIDINE) [Concomitant]
  16. ARICEPT (DONEPEZIL) [Concomitant]
  17. COLACE [Concomitant]

REACTIONS (7)
  - Lethargy [None]
  - Respiratory distress [None]
  - Tachycardia [None]
  - Tumour rupture [None]
  - Haemorrhage [None]
  - Diabetes mellitus inadequate control [None]
  - Anaemia [None]
